FAERS Safety Report 9850780 (Version 2)
Quarter: 2014Q1

REPORT INFORMATION
  Report Type: Spontaneous
  Country: US (occurrence: US)
  Receive Date: 20140128
  Receipt Date: 20140128
  Transmission Date: 20141002
  Serious: Yes (Other)
  Sender: FDA-Public Use
  Company Number: US-TEVA-412365USA

PATIENT
  Sex: Male

DRUGS (1)
  1. AMIODARONE [Suspect]

REACTIONS (1)
  - Blindness [Unknown]
